FAERS Safety Report 23592814 (Version 5)
Quarter: 2024Q2

REPORT INFORMATION
  Report Type: Spontaneous
  Country: CA (occurrence: CA)
  Receive Date: 20240304
  Receipt Date: 20240509
  Transmission Date: 20240716
  Serious: Yes (Death, Hospitalization, Other)
  Sender: FDA-Public Use
  Company Number: CA-INCYTE CORPORATION-2024IN001430

PATIENT

DRUGS (2)
  1. PEMAZYRE [Suspect]
     Active Substance: PEMIGATINIB
     Indication: Adenoid cystic carcinoma
     Dosage: 13.5 MILLIGRAM, QD 14 DAYS ON AND 7 DAYS OFF
     Route: 048
     Dates: start: 20240211
  2. PEMAZYRE [Suspect]
     Active Substance: PEMIGATINIB
     Dosage: 13.5 MILLIGRAM, QD (14 DAYS ON AND 7 DAYS OFF)
     Route: 048
     Dates: start: 20240217, end: 20240327

REACTIONS (11)
  - Adenoid cystic carcinoma [Fatal]
  - Disease progression [Fatal]
  - Hypercalcaemia [Recovered/Resolved]
  - General physical health deterioration [Unknown]
  - Oxygen saturation decreased [Unknown]
  - Haemoglobin decreased [Recovering/Resolving]
  - Pyrexia [Unknown]
  - Vomiting [Unknown]
  - Off label use [Unknown]
  - Dyspnoea [Recovering/Resolving]
  - Fatigue [Recovering/Resolving]

NARRATIVE: CASE EVENT DATE: 20240217
